FAERS Safety Report 24109971 (Version 3)
Quarter: 2025Q3

REPORT INFORMATION
  Report Type: Report from Study
  Country: EU (occurrence: EU)
  Receive Date: 20240718
  Receipt Date: 20250924
  Transmission Date: 20251020
  Serious: Yes (Other)
  Sender: PFIZER
  Company Number: EU-PFM-2024-03966

PATIENT
  Sex: Female
  Weight: 106 kg

DRUGS (27)
  1. BRAFTOVI [Suspect]
     Active Substance: ENCORAFENIB
     Indication: Colorectal cancer
     Route: 048
     Dates: start: 20240122, end: 20240317
  2. BRAFTOVI [Suspect]
     Active Substance: ENCORAFENIB
     Dosage: 300 MG, DAILY
     Route: 065
     Dates: start: 20240318, end: 20240602
  3. CETUXIMAB [Suspect]
     Active Substance: CETUXIMAB
     Indication: Colorectal cancer
     Dosage: UNK MG/M2, WEEKLY FORMULATION: LIQUID DILUTION
     Route: 042
     Dates: start: 20240122
  4. CETUXIMAB [Suspect]
     Active Substance: CETUXIMAB
     Dosage: 250 MG/M2, WEEKLY, FORMULATION: LIQUID DILUTION
     Route: 065
     Dates: start: 20240129
  5. CETUXIMAB [Suspect]
     Active Substance: CETUXIMAB
     Dosage: 250 MG/M2, WEEKLY, FORMULATION: LIQUID DILUTION
     Route: 065
     Dates: start: 20240205
  6. CETUXIMAB [Suspect]
     Active Substance: CETUXIMAB
     Dosage: 250 MG/M2, WEEKLY, FORMULATION: LIQUID DILUTION
     Route: 065
     Dates: start: 20240212
  7. CETUXIMAB [Suspect]
     Active Substance: CETUXIMAB
     Dosage: 250 MG/M2, WEEKLY, FORMULATION: LIQUID DILUTION
     Route: 065
     Dates: start: 20240219
  8. CETUXIMAB [Suspect]
     Active Substance: CETUXIMAB
     Dosage: 250 MG/M2, WEEKLY, FORMULATION: LIQUID DILUTION
     Route: 065
     Dates: start: 20240226
  9. CETUXIMAB [Suspect]
     Active Substance: CETUXIMAB
     Dosage: 250 MG/M2, WEEKLY, FORMULATION: LIQUID DILUTION
     Route: 065
     Dates: start: 20240304
  10. CETUXIMAB [Suspect]
     Active Substance: CETUXIMAB
     Dosage: 250 MG/M2, WEEKLY, FORMULATION: LIQUID DILUTION
     Route: 065
     Dates: start: 20240311
  11. CETUXIMAB [Suspect]
     Active Substance: CETUXIMAB
     Dosage: 250 MG/M2, WEEKLY, FORMULATION: LIQUID DILUTION
     Route: 065
     Dates: start: 20240318
  12. CETUXIMAB [Suspect]
     Active Substance: CETUXIMAB
     Dosage: 250 MG/M2, WEEKLY, FORMULATION: LIQUID DILUTION
     Route: 065
     Dates: start: 20240325
  13. CETUXIMAB [Suspect]
     Active Substance: CETUXIMAB
     Dosage: 250 MG/M2, WEEKLY, FORMULATION: LIQUID DILUTION
     Route: 065
     Dates: start: 20240401
  14. CETUXIMAB [Suspect]
     Active Substance: CETUXIMAB
     Dosage: 250 MG/M2, WEEKLY, FORMULATION: LIQUID DILUTION
     Route: 065
     Dates: start: 20240408
  15. CETUXIMAB [Suspect]
     Active Substance: CETUXIMAB
     Dosage: 250 MG/M2, WEEKLY, FORMULATION: LIQUID DILUTION
     Route: 065
     Dates: start: 20240415
  16. CETUXIMAB [Suspect]
     Active Substance: CETUXIMAB
     Dosage: 250 MG/M2, WEEKLY, FORMULATION: LIQUID DILUTION
     Route: 065
     Dates: start: 20240422
  17. CETUXIMAB [Suspect]
     Active Substance: CETUXIMAB
     Dosage: 250 MG/M2, WEEKLY, FORMULATION: LIQUID DILUTION
     Route: 065
     Dates: start: 20240506
  18. CETUXIMAB [Suspect]
     Active Substance: CETUXIMAB
     Dosage: 250 MG/M2, WEEKLY, FORMULATION: LIQUID DILUTION
     Route: 065
     Dates: start: 20240513
  19. CETUXIMAB [Suspect]
     Active Substance: CETUXIMAB
     Dosage: 250 MG/M2, WEEKLY, FORMULATION: LIQUID DILUTION
     Route: 065
     Dates: start: 20240521
  20. CETUXIMAB [Suspect]
     Active Substance: CETUXIMAB
     Dosage: 250 MG/M2, WEEKLY, FORMULATION: LIQUID DILUTION
     Route: 065
     Dates: start: 20240603
  21. CETUXIMAB [Suspect]
     Active Substance: CETUXIMAB
     Dosage: 250 MG/M2, WEEKLY, FORMULATION: LIQUID DILUTION
     Route: 065
     Dates: start: 20240610
  22. CETUXIMAB [Suspect]
     Active Substance: CETUXIMAB
     Dosage: 250 MG/M2, WEEKLY, FORMULATION: LIQUID DILUTION
     Route: 065
     Dates: start: 20240617
  23. MINOCYCLINE [Concomitant]
     Active Substance: MINOCYCLINE HYDROCHLORIDE
     Indication: Prophylaxis
     Dosage: 50 MG, BID (2/DAY)
     Route: 048
  24. KALINOR [Concomitant]
     Indication: Prophylaxis
     Dosage: 1200 MG, BID (2/DAY)
     Route: 048
  25. KALINOR [Concomitant]
     Dosage: 600 MG, DAILY
     Route: 048
  26. TORSEMIDE [Concomitant]
     Active Substance: TORSEMIDE
     Indication: Hypertension
     Dosage: 10 MG, TID (3/DAY)
     Route: 048
  27. SPIRONOLACTONE [Concomitant]
     Active Substance: SPIRONOLACTONE
     Indication: Hypertension
     Dosage: 50 MG, BID (2/DAY)
     Route: 048

REACTIONS (3)
  - Dyspnoea [Not Recovered/Not Resolved]
  - Fatigue [Recovered/Resolved]
  - Insomnia [Recovered/Resolved]

NARRATIVE: CASE EVENT DATE: 20240408
